FAERS Safety Report 8917626 (Version 2)
Quarter: 2013Q2

REPORT INFORMATION
  Report Type: Spontaneous
  Country: PR (occurrence: PR)
  Receive Date: 20121120
  Receipt Date: 20130426
  Transmission Date: 20140414
  Serious: Yes (Hospitalization)
  Sender: FDA-Public Use
  Company Number: PR-ABBOTT-12P-131-1008416-00

PATIENT
  Age: 66 Year
  Sex: Female
  Weight: 69.92 kg

DRUGS (9)
  1. HUMIRA [Suspect]
     Indication: RHEUMATOID ARTHRITIS
     Route: 058
  2. HYZAAR [Concomitant]
     Indication: HYPERTENSION
     Dosage: 12.5
     Route: 048
  3. HYZAAR [Concomitant]
     Route: 048
  4. FOLIC ACID [Concomitant]
     Indication: PRODUCT USED FOR UNKNOWN INDICATION
     Route: 048
  5. FOLIC ACID [Concomitant]
     Route: 048
  6. METHOTREXATE [Concomitant]
     Indication: RHEUMATOID ARTHRITIS
     Route: 058
  7. METHOTREXATE [Concomitant]
     Route: 048
  8. PLAQUENIL [Concomitant]
     Indication: RHEUMATOID ARTHRITIS
     Route: 048
  9. PLAQUENIL [Concomitant]
     Route: 048

REACTIONS (3)
  - Joint injury [Unknown]
  - Nasopharyngitis [Unknown]
  - Depressed mood [Unknown]
